FAERS Safety Report 20578164 (Version 1)
Quarter: 2022Q1

REPORT INFORMATION
  Report Type: Spontaneous
  Country: US (occurrence: None)
  Receive Date: 20220310
  Receipt Date: 20220310
  Transmission Date: 20220423
  Serious: No
  Sender: FDA-Public Use
  Company Number: None

PATIENT
  Age: 64 Year
  Sex: Male
  Weight: 82 kg

DRUGS (1)
  1. CILGAVIMAB\TIXAGEVIMAB [Suspect]
     Active Substance: CILGAVIMAB\TIXAGEVIMAB
     Indication: COVID-19 prophylaxis
     Dosage: FREQUENCY : ONCE;?
     Route: 041
     Dates: start: 20220216, end: 20220216

REACTIONS (2)
  - Angioedema [None]
  - Tongue discomfort [None]

NARRATIVE: CASE EVENT DATE: 20220216
